FAERS Safety Report 5747302-4 (Version None)
Quarter: 2008Q2

REPORT INFORMATION
  Report Type: 
  Country: None (occurrence: None)
  Receive Date: 20080523
  Receipt Date: 20080520
  Transmission Date: 20081010
  Serious: Yes (Other)
  Sender: FDA-Public Use
  Company Number: FR-BRISTOL-MYERS SQUIBB COMPANY-14066559

PATIENT
  Age: 65 Year
  Sex: Male

DRUGS (2)
  1. MITOMYCIN [Suspect]
     Indication: BLADDER CANCER
     Dosage: FIRST INSTILLATION ON 2004,STOPPED ON 28OCT07 AT 4TH INSTILLATION.  THERAPY DURATION 4 WEEKS 3 DAYS
     Route: 043
     Dates: start: 20070928, end: 20071028
  2. LEVOTHYROXINE SODIUM [Concomitant]
     Route: 048

REACTIONS (1)
  - DERMATITIS BULLOUS [None]
